FAERS Safety Report 10232657 (Version 1)
Quarter: 2014Q2

REPORT INFORMATION
  Report Type: Spontaneous
  Country: US (occurrence: US)
  Receive Date: 20140612
  Receipt Date: 20140612
  Transmission Date: 20141212
  Serious: Yes (Hospitalization)
  Sender: FDA-Public Use
  Company Number: US-ASTRAZENECA-2014SE39176

PATIENT
  Sex: Female

DRUGS (2)
  1. PULMICORT [Suspect]
     Route: 055
  2. SYMBICORT [Suspect]
     Dosage: UNKNOWN
     Route: 055

REACTIONS (4)
  - Cardiac disorder [Unknown]
  - General physical health deterioration [Unknown]
  - Impaired work ability [Unknown]
  - Intentional product misuse [Unknown]
